FAERS Safety Report 8882005 (Version 3)
Quarter: 2013Q4

REPORT INFORMATION
  Report Type: Report from Study
  Country: JP (occurrence: JP)
  Receive Date: 20121102
  Receipt Date: 20131217
  Transmission Date: 20140711
  Serious: Yes (Hospitalization)
  Sender: FDA-Public Use
  Company Number: JP-PFIZER INC-2012234128

PATIENT
  Age: 78 Year
  Sex: Female
  Weight: 39 kg

DRUGS (8)
  1. VIVIANT [Suspect]
     Indication: OSTEOPOROSIS
     Dosage: 20 MG, 1X/DAY
     Route: 048
     Dates: start: 20111208
  2. NORVASC [Concomitant]
     Indication: HYPERTENSION
     Dosage: 5 MG, 1X/DAY
     Route: 048
  3. ALFAROL [Concomitant]
     Indication: OSTEOPOROSIS
     Dosage: 0.5 MG, 1X/DAY
     Route: 048
  4. KELNAC [Concomitant]
     Indication: PROPHYLAXIS
     Dosage: 80 MG, 1X/DAY
     Route: 048
     Dates: start: 20110204
  5. INTEBAN [Concomitant]
     Indication: BACK PAIN
     Dosage: 25 MG, 1X/DAY
     Route: 048
     Dates: start: 20100204
  6. ASPARA-CA [Concomitant]
     Indication: OSTEOPOROSIS
     Dosage: 2 DF, 2X/DAY
     Route: 048
  7. VITAMEDIN CAPSULE [Concomitant]
     Indication: PROPHYLAXIS
     Dosage: 75 MG, DAILY
     Route: 048
  8. PURSENNID [Concomitant]
     Dosage: 12 MG, DAILY
     Route: 048
     Dates: start: 20121206

REACTIONS (1)
  - Colitis ischaemic [Recovered/Resolved]
